FAERS Safety Report 6129923-2 (Version None)
Quarter: 2009Q1

REPORT INFORMATION
  Report Type: 
  Country: None (occurrence: None)
  Receive Date: 20090324
  Receipt Date: 20090309
  Transmission Date: 20090719
  Serious: Yes (Other)
  Sender: FDA-Public Use
  Company Number: JAUSA18805

PATIENT
  Age: 30 Year
  Sex: Female

DRUGS (1)
  1. NIZORAL [Suspect]
     Indication: ONYCHOMYCOSIS
     Route: 048
     Dates: start: 19840618, end: 19850120

REACTIONS (2)
  - ABORTION SPONTANEOUS [None]
  - DRUG EXPOSURE DURING PREGNANCY [None]
